FAERS Safety Report 5804983-4 (Version None)
Quarter: 2008Q3

REPORT INFORMATION
  Report Type: 
  Country: None (occurrence: None)
  Receive Date: 20080709
  Receipt Date: 20080702
  Transmission Date: 20090109
  Serious: Yes (Other)
  Sender: FDA-Public Use
  Company Number: UG-GILEAD-2008-0017171

PATIENT
  Age: 34 Year
  Sex: Female

DRUGS (5)
  1. VIREAD [Suspect]
     Route: 048
     Dates: start: 20070914, end: 20071122
  2. NEVIRAPINE [Concomitant]
     Route: 048
     Dates: start: 20070528, end: 20071122
  3. NEVIRAPINE [Concomitant]
     Route: 048
     Dates: start: 20070514, end: 20071128
  4. LAMIVUDINE [Concomitant]
     Route: 048
     Dates: start: 20060914, end: 20071122
  5. EFAVIRENZ [Concomitant]
     Route: 048
     Dates: start: 20060914, end: 20070514

REACTIONS (2)
  - PREGNANCY [None]
  - STILLBIRTH [None]
